FAERS Safety Report 8163328-8 (Version None)
Quarter: 2012Q1

REPORT INFORMATION
  Report Type: 
  Country: None (occurrence: None)
  Receive Date: 20120224
  Receipt Date: 20120221
  Transmission Date: 20120608
  Serious: Yes (Hospitalization, Other)
  Sender: FDA-Public Use
  Company Number: US-BAYER-2012-002735

PATIENT
  Age: 43 Year
  Sex: Female
  Weight: 62.585 kg

DRUGS (2)
  1. BETASERON [Suspect]
     Indication: MULTIPLE SCLEROSIS
     Dosage: 8 MIU, QOD
     Route: 058
     Dates: start: 20110909
  2. ALLERGY MEDICATION [Concomitant]

REACTIONS (10)
  - VOMITING [None]
  - SINUSITIS [None]
  - CHILLS [None]
  - ABASIA [None]
  - MOBILITY DECREASED [None]
  - INJECTION SITE ERYTHEMA [None]
  - TREMOR [None]
  - PYREXIA [None]
  - WHITE BLOOD CELL COUNT INCREASED [None]
  - INJECTION SITE RASH [None]
